FAERS Safety Report 5592477-3 (Version None)
Quarter: 2008Q1

REPORT INFORMATION
  Report Type: 
  Country: None (occurrence: None)
  Receive Date: 20080111
  Receipt Date: 20080108
  Transmission Date: 20080703
  Serious: Yes (Disabling)
  Sender: FDA-Public Use
  Company Number: 2007SP022462

PATIENT
  Age: 51 Year
  Sex: Female
  Weight: 61.2356 kg

DRUGS (3)
  1. PROVENTIL-HFA [Suspect]
     Indication: COUGH
     Dosage: PRN;PO
     Route: 048
     Dates: start: 20071115, end: 20071129
  2. FLOVENT HFA [Suspect]
     Indication: COUGH
  3. ALBUTEROL [Concomitant]

REACTIONS (3)
  - ASTHMA [None]
  - CONDITION AGGRAVATED [None]
  - PHARMACEUTICAL PRODUCT COMPLAINT [None]
